FAERS Safety Report 12713890 (Version 1)
Quarter: 2016Q3

REPORT INFORMATION
  Report Type: Spontaneous
  Country: JP (occurrence: JP)
  Receive Date: 20160905
  Receipt Date: 20160905
  Transmission Date: 20161109
  Serious: Yes (Other)
  Sender: FDA-Public Use
  Company Number: JP-AMGEN-JPNSP2016116459

PATIENT

DRUGS (7)
  1. FILGRASTIM [Suspect]
     Active Substance: FILGRASTIM
     Indication: NEUTROPENIA
     Dosage: 50 MUG/M2, UNK
     Route: 065
  2. DEXAMETHASONE. [Suspect]
     Active Substance: DEXAMETHASONE
     Indication: LYMPHOMA
     Dosage: 40 MG, UNK (ON DAY 1-3)
     Route: 042
  3. CYTARABINE. [Suspect]
     Active Substance: CYTARABINE
     Indication: LYMPHOMA
     Dosage: 2000 MG/M2, UNK (ON DAY 2-3)
     Route: 042
  4. RITUXIMAB [Suspect]
     Active Substance: RITUXIMAB
     Indication: LYMPHOMA
     Dosage: UNK
     Route: 065
  5. PEGFILGRASTIM [Suspect]
     Active Substance: PEGFILGRASTIM
     Indication: NEUTROPENIA
     Dosage: 3.6 MG, UNK
     Route: 058
  6. CYCLOPHOSPHAMIDE. [Suspect]
     Active Substance: CYCLOPHOSPHAMIDE
     Indication: LYMPHOMA
     Dosage: 1200 MG/M2, UNK
     Route: 042
  7. ETOPOSIDE. [Suspect]
     Active Substance: ETOPOSIDE
     Indication: LYMPHOMA
     Dosage: 100 MG/M2, UNK
     Route: 042

REACTIONS (1)
  - Febrile neutropenia [Unknown]
